FAERS Safety Report 6949680 (Version 3)
Quarter: 2012Q4

REPORT INFORMATION
  Report Type: 
  Country: US (occurrence: US)
  Receive Date: 20060530
  Receipt Date: 20121101
  Transmission Date: 20130627
  Serious: Yes (Other)
  Sender: FDA-Public Use
  Company Number: US-PFIZER INC-2006065530

PATIENT
  Age: 57 Year
  Sex: Female
  Weight: 81 kg

DRUGS (8)
  1. PROVERA [Suspect]
     Indication: HORMONE REPLACEMENT THERAPY
     Dosage: UNK
     Route: 048
     Dates: end: 2000
  2. MEDROXYPROGESTERONE ACETATE [Suspect]
     Indication: HORMONE REPLACEMENT THERAPY
     Dosage: UNK
     Route: 048
     Dates: start: 2001, end: 2002
  3. MEDROXYPROGESTERONE ACETATE [Suspect]
     Indication: HORMONE REPLACEMENT THERAPY
     Dosage: UNK
     Dates: start: 2002, end: 2003
  4. ESTRATEST [Suspect]
     Indication: HORMONE REPLACEMENT THERAPY
     Dosage: UNK
     Dates: end: 2003
  5. VERAPAMIL [Concomitant]
     Indication: BLOOD PRESSURE HIGH
     Dosage: 240 mg, UNK
     Dates: start: 1998
  6. BENAZEPRIL [Concomitant]
     Indication: HYPERTENSION
     Dosage: 40 mg, UNK
     Dates: start: 1998
  7. HYDROCHLOROTHIAZIDE [Concomitant]
     Indication: BLOOD PRESSURE HIGH
     Dosage: 25 mg, UNK
     Dates: start: 1998
  8. LIPITOR [Concomitant]
     Indication: BLOOD PRESSURE HIGH
     Dosage: 10 mg, UNK
     Dates: start: 1998

REACTIONS (1)
  - Invasive lobular breast carcinoma [Unknown]
